FAERS Safety Report 8017379-4 (Version None)
Quarter: 2012Q1

REPORT INFORMATION
  Report Type: 
  Country: None (occurrence: None)
  Receive Date: 20120102
  Receipt Date: 20111222
  Transmission Date: 20120608
  Serious: Yes (Death)
  Sender: FDA-Public Use
  Company Number: JP-ROCHE-1025479

PATIENT
  Sex: Male

DRUGS (12)
  1. LIMETHASON [Concomitant]
     Route: 041
     Dates: start: 20091119, end: 20091119
  2. ASPIRIN [Concomitant]
     Indication: ANGINA PECTORIS
     Route: 048
  3. RABEPRAZOLE SODIUM [Concomitant]
     Indication: GASTROOESOPHAGEAL REFLUX DISEASE
     Route: 048
  4. LOXONIN [Concomitant]
     Indication: HYPERTENSION
     Route: 048
  5. LIMETHASON [Concomitant]
     Indication: RHEUMATOID ARTHRITIS
     Route: 041
     Dates: start: 20090609, end: 20090609
  6. SOLON [Concomitant]
     Indication: GASTROOESOPHAGEAL REFLUX DISEASE
     Route: 048
  7. MICARDIS [Concomitant]
     Indication: GASTROOESOPHAGEAL REFLUX DISEASE
     Route: 048
  8. ACTEMRA [Suspect]
     Indication: RHEUMATOID ARTHRITIS
     Route: 041
     Dates: start: 20090609, end: 20101029
  9. PREDNISOLONE [Concomitant]
     Indication: RHEUMATOID ARTHRITIS
     Route: 048
  10. ISONIAZID [Concomitant]
     Indication: ANTIBIOTIC PROPHYLAXIS
     Route: 048
  11. GLYBURIDE [Concomitant]
     Indication: DIABETES MELLITUS
     Route: 048
  12. ALFAROL [Concomitant]
     Indication: OSTEOPOROSIS
     Route: 048
     Dates: start: 20091110

REACTIONS (1)
  - DEATH [None]
